FAERS Safety Report 8947369 (Version 1)
Quarter: 2012Q4

REPORT INFORMATION
  Report Type: 
  Country: FR (occurrence: FR)
  Receive Date: 20121205
  Receipt Date: 20121205
  Transmission Date: 20130627
  Serious: Yes (Hospitalization)
  Sender: FDA-Public Use
  Company Number: FR-PFIZER INC-2012146969

PATIENT
  Age: 42 Year
  Sex: Female

DRUGS (9)
  1. FLUOROURACILE PFIZER [Suspect]
     Indication: COLORECTAL CANCER
     Dosage: 5000 mg/100 mL, cyclic
     Route: 042
     Dates: start: 20120322
  2. FLUOROURACILE PFIZER [Suspect]
     Dosage: 400 mg/m2, 1x/day, Day-1, 4th cycle
     Route: 040
     Dates: start: 20120503
  3. FLUOROURACILE PFIZER [Suspect]
     Dosage: 2400 mg/m2, cyclic, from D-1 to D-2, 4th cycle
     Route: 041
     Dates: start: 20120503, end: 20120504
  4. OXALIPLATIN [Suspect]
     Indication: COLORECTAL CANCER
     Dosage: 200 mg/40 mL, cyclic
     Route: 042
     Dates: start: 20120322
  5. OXALIPLATIN [Suspect]
     Dosage: 85 mg/m2, cyclic, D-1, 4th cycle
     Route: 042
     Dates: start: 20120503, end: 20120504
  6. ERBITUX [Suspect]
     Indication: COLORECTAL CANCER
     Dosage: 500 mg/100 mL, cyclic
     Route: 042
     Dates: start: 20120322
  7. ERBITUX [Suspect]
     Dosage: 500 mg/m2, cyclic, D1, 4th cycle
     Route: 042
     Dates: start: 20120503, end: 20120504
  8. CALCIUM LEVOFOLINATE [Suspect]
     Indication: COLORECTAL CANCER
     Dosage: 175 mg/17.5 mL, cyclic
     Route: 042
     Dates: start: 20120322
  9. CALCIUM LEVOFOLINATE [Suspect]
     Dosage: 200 mg/m2, cyclic, D1, 4th cycle
     Route: 042
     Dates: start: 20120503, end: 20120504

REACTIONS (1)
  - Haematuria [Recovered/Resolved]
